FAERS Safety Report 4673196-4 (Version None)
Quarter: 2005Q2

REPORT INFORMATION
  Report Type: 
  Country: None (occurrence: None)
  Receive Date: 20050525
  Receipt Date: 20040603
  Transmission Date: 20051028
  Serious: No
  Sender: FDA-Public Use
  Company Number: US-GLAXOSMITHKLINE-A0513292A

PATIENT

DRUGS (1)
  1. BACTROBAN [Suspect]
     Indication: ILL-DEFINED DISORDER
     Route: 061

REACTIONS (1)
  - DRUG HYPERSENSITIVITY [None]
